FAERS Safety Report 5067413-9 (Version None)
Quarter: 2006Q3

REPORT INFORMATION
  Report Type: 
  Country: None (occurrence: None)
  Receive Date: 20060726
  Receipt Date: 20060720
  Transmission Date: 20061208
  Serious: Yes (Other)
  Sender: FDA-Public Use
  Company Number: 200610904BYL

PATIENT
  Age: 75 Year
  Sex: Male

DRUGS (8)
  1. ASPIRIN [Suspect]
     Indication: ANGINA PECTORIS
     Dosage: 100 MG, QD, ORAL
     Route: 048
     Dates: start: 20060619, end: 20060720
  2. TICLOPIDINE HCL [Suspect]
     Dosage: 100 MG, BID, ORAL
     Route: 048
     Dates: start: 20060608, end: 20060620
  3. PLETAL [Suspect]
     Dosage: 50 MG, BID, ORAL
     Route: 048
     Dates: start: 20060619, end: 20060706
  4. ARTIST [Concomitant]
  5. RENIVACE [Concomitant]
  6. ASPENON [Concomitant]
  7. NORVASC [Concomitant]
  8. OLMETEC [Concomitant]

REACTIONS (3)
  - CHOLESTASIS [None]
  - JAUNDICE [None]
  - LIVER DISORDER [None]
